FAERS Safety Report 12467337 (Version 1)
Quarter: 2016Q2

REPORT INFORMATION
  Report Type: Spontaneous
  Country: US (occurrence: US)
  Receive Date: 20160615
  Receipt Date: 20160615
  Transmission Date: 20160815
  Serious: No
  Sender: FDA-Public Use
  Company Number: US-PFIZER INC-2016272488

PATIENT
  Age: 65 Year
  Sex: Female
  Weight: 56.7 kg

DRUGS (4)
  1. LYRICA [Suspect]
     Active Substance: PREGABALIN
     Indication: NERVE INJURY
     Dosage: 100 MG, 2X/DAY
     Route: 048
     Dates: start: 201408
  2. NORCO [Concomitant]
     Active Substance: ACETAMINOPHEN\HYDROCODONE BITARTRATE
     Indication: PAIN
     Dosage: [HYDROCODONE BITARTRATE 5MG]/[PARACETAMOL 325MG], 1.5-2 TABLETS PER DAY
     Route: 048
     Dates: start: 201408
  3. ONE-A-DAY [Concomitant]
     Dosage: UNKNOWN DOSE, ONE A DAY
     Route: 048
     Dates: start: 2015
  4. BLACK COHOSH [Concomitant]
     Active Substance: BLACK COHOSH
     Indication: NIGHT SWEATS
     Dosage: 80 MG, 2X/DAY
     Route: 048
     Dates: start: 20160516

REACTIONS (16)
  - Drug dose omission [Unknown]
  - Hot flush [Recovering/Resolving]
  - Pain in extremity [Unknown]
  - Disturbance in attention [Unknown]
  - Intentional product misuse [Not Recovered/Not Resolved]
  - Musculoskeletal stiffness [Recovering/Resolving]
  - Chills [Unknown]
  - Intentional product use issue [Recovered/Resolved]
  - Night sweats [Recovering/Resolving]
  - Chest pain [Unknown]
  - Feeling cold [Unknown]
  - Myalgia [Recovering/Resolving]
  - Mobility decreased [Unknown]
  - Condition aggravated [Recovering/Resolving]
  - Memory impairment [Not Recovered/Not Resolved]
  - Depressed mood [Not Recovered/Not Resolved]

NARRATIVE: CASE EVENT DATE: 201601
